FAERS Safety Report 15021705 (Version 2)
Quarter: 2018Q3

REPORT INFORMATION
  Report Type: Spontaneous
  Country: US (occurrence: US)
  Receive Date: 20180618
  Receipt Date: 20180702
  Transmission Date: 20181010
  Serious: No
  Sender: FDA-Public Use
  Company Number: US-GLAXOSMITHKLINE-US2018106429

PATIENT
  Sex: Female
  Weight: 75.74 kg

DRUGS (2)
  1. METFORMIN [Concomitant]
     Active Substance: METFORMIN HYDROCHLORIDE
  2. TANZEUM [Suspect]
     Active Substance: ALBIGLUTIDE
     Indication: TYPE 2 DIABETES MELLITUS
     Dosage: 50 MG, WE
     Route: 058
     Dates: start: 2015, end: 20180621

REACTIONS (5)
  - Injection site pruritus [Recovered/Resolved]
  - Discomfort [Unknown]
  - Injection site rash [Recovering/Resolving]
  - Injection site erythema [Recovered/Resolved]
  - Injection site scab [Unknown]
